FAERS Safety Report 10083519 (Version 1)
Quarter: 2014Q2

REPORT INFORMATION
  Report Type: Spontaneous
  Country: US (occurrence: US)
  Receive Date: 20140417
  Receipt Date: 20140417
  Transmission Date: 20141212
  Serious: No
  Sender: FDA-Public Use
  Company Number: US-009507513-1404USA008982

PATIENT
  Sex: 0

DRUGS (3)
  1. JANUVIA [Suspect]
  2. VICTOZA [Suspect]
  3. METFORMIN [Suspect]

REACTIONS (7)
  - Vision blurred [Unknown]
  - Memory impairment [Unknown]
  - Suicidal ideation [Unknown]
  - Anxiety [Unknown]
  - Depression [Unknown]
  - Fatigue [Unknown]
  - Nausea [Unknown]
